FAERS Safety Report 9796694 (Version 1)
Quarter: 2014Q1

REPORT INFORMATION
  Report Type: Spontaneous
  Country: US (occurrence: US)
  Receive Date: 20140103
  Receipt Date: 20140103
  Transmission Date: 20141002
  Serious: Yes (Other)
  Sender: FDA-Public Use
  Company Number: US-TEVA-454119USA

PATIENT
  Sex: Female
  Weight: 89.89 kg

DRUGS (6)
  1. VERAPAMIL [Suspect]
     Indication: HYPERTENSION
     Dosage: 180 MILLIGRAM DAILY;
     Dates: start: 2012
  2. VERAPAMIL HYDROCHLORIDE [Suspect]
     Indication: HYPERTENSION
     Dosage: 180 MILLIGRAM DAILY;
     Dates: start: 201311
  3. HYZAAR [Suspect]
     Dosage: 1 DOSAGE FORMS DAILY; 100/25 MG
  4. ATENOLOL [Suspect]
     Indication: HYPERTENSION
     Dosage: 25 MILLIGRAM DAILY;
  5. VITAMINS [Suspect]
  6. XANAX [Suspect]

REACTIONS (5)
  - Atrial fibrillation [Unknown]
  - Erythema [Unknown]
  - Blood pressure increased [Unknown]
  - Flatulence [Unknown]
  - Drug ineffective [Unknown]
